FAERS Safety Report 14945066 (Version 1)
Quarter: 2018Q2

REPORT INFORMATION
  Report Type: Spontaneous
  Country: CL (occurrence: CL)
  Receive Date: 20180529
  Receipt Date: 20180529
  Transmission Date: 20180711
  Serious: Yes (Hospitalization)
  Sender: FDA-Public Use
  Company Number: CL-ASTRAZENECA-2018SE69022

PATIENT
  Age: 23663 Day
  Sex: Male

DRUGS (2)
  1. NEXIUM [Suspect]
     Active Substance: ESOMEPRAZOLE MAGNESIUM
     Indication: GASTRIC HAEMORRHAGE
     Dosage: 40.0MG UNKNOWN
     Route: 048
     Dates: start: 20170228
  2. NEXIUM [Suspect]
     Active Substance: ESOMEPRAZOLE MAGNESIUM
     Indication: GASTRIC ULCER
     Dosage: 40.0MG UNKNOWN
     Route: 048
     Dates: start: 20170228

REACTIONS (1)
  - Intestinal cyst [Unknown]

NARRATIVE: CASE EVENT DATE: 20180104
